FAERS Safety Report 4727845-2 (Version None)
Quarter: 2005Q3

REPORT INFORMATION
  Report Type: 
  Country: None (occurrence: None)
  Receive Date: 20050728
  Receipt Date: 20050425
  Transmission Date: 20060218
  Serious: Yes (Hospitalization)
  Sender: FDA-Public Use
  Company Number: US-MERCK-0504USA04451

PATIENT
  Age: 68 Year
  Sex: Male
  Weight: 95 kg

DRUGS (12)
  1. VIOXX [Suspect]
     Indication: ARTHRITIS
     Route: 048
     Dates: start: 20000320, end: 20011125
  2. VIOXX [Suspect]
     Route: 048
     Dates: start: 20011126, end: 20040924
  3. NORVASC [Concomitant]
     Indication: CHEST PAIN
     Route: 048
     Dates: start: 20000301, end: 20040930
  4. HYDROCODONE BITARTRATE [Concomitant]
     Route: 065
  5. HYTRIN [Concomitant]
     Indication: PROPHYLAXIS
     Route: 048
     Dates: start: 20000301, end: 20040930
  6. PREVACID [Concomitant]
     Indication: GASTROOESOPHAGEAL REFLUX DISEASE
     Route: 048
     Dates: start: 19990422, end: 20040909
  7. ARAVA [Concomitant]
     Indication: RHEUMATOID ARTHRITIS
     Route: 048
     Dates: start: 20000815, end: 20030122
  8. ASACOL [Concomitant]
     Indication: INFLAMMATION
     Route: 048
     Dates: start: 20000119, end: 20040909
  9. ENBREL [Concomitant]
     Indication: RHEUMATOID ARTHRITIS
     Route: 051
     Dates: start: 20000119
  10. LEXAPRO [Concomitant]
     Route: 048
  11. LEVBID [Concomitant]
     Indication: PEPTIC ULCER
     Route: 048
     Dates: start: 20000301, end: 20040322
  12. HYDRODIURIL [Concomitant]
     Route: 048

REACTIONS (8)
  - ACUTE MYOCARDIAL INFARCTION [None]
  - ARTHROPATHY [None]
  - BRADYCARDIA [None]
  - CORONARY ARTERY DISEASE [None]
  - CORONARY ARTERY OCCLUSION [None]
  - INTERVERTEBRAL DISC PROTRUSION [None]
  - MYOCARDIAL INFARCTION [None]
  - PALPITATIONS [None]
